FAERS Safety Report 9892598 (Version 2)
Quarter: 2014Q2

REPORT INFORMATION
  Report Type: Spontaneous
  Country: MX (occurrence: MX)
  Receive Date: 20140212
  Receipt Date: 20140424
  Transmission Date: 20141212
  Serious: Yes (Other)
  Sender: FDA-Public Use
  Company Number: PHHY2014MX016719

PATIENT
  Age: 57 Year
  Sex: Female
  Weight: 64 kg

DRUGS (2)
  1. TRILEPTAL [Suspect]
     Indication: EPILEPSY
     Dosage: 1 DF, DAILY
     Route: 048
     Dates: start: 20140109, end: 20140131
  2. LEXOTAN [Concomitant]
     Indication: SEDATION
     Dosage: 1 DF, DAILY
     Route: 048
     Dates: start: 201401

REACTIONS (4)
  - Nervous system disorder [Recovering/Resolving]
  - Convulsion [Recovering/Resolving]
  - Petit mal epilepsy [Recovering/Resolving]
  - Drug ineffective [Unknown]
